FAERS Safety Report 9821926 (Version 1)
Quarter: 2014Q1

REPORT INFORMATION
  Report Type: Spontaneous
  Country: US (occurrence: US)
  Receive Date: 20140116
  Receipt Date: 20140116
  Transmission Date: 20141002
  Serious: Yes (Death)
  Sender: FDA-Public Use
  Company Number: US-PFIZER INC-2014006865

PATIENT
  Age: 27 Year
  Sex: Female

DRUGS (7)
  1. FENTANYL [Suspect]
     Dosage: UNK
  2. OXYCODONE HYDROCHLORIDE [Suspect]
     Dosage: UNK
  3. DEXTROMETHORPHAN HBR [Suspect]
     Dosage: UNK
  4. CLONAZEPAM [Suspect]
     Dosage: UNK
  5. TRAZODONE [Suspect]
     Dosage: UNK
  6. DOXYLAMINE [Suspect]
     Dosage: UNK
  7. CITALOPRAM [Suspect]
     Dosage: UNK

REACTIONS (1)
  - Drug abuse [Fatal]
